FAERS Safety Report 5903253-3 (Version None)
Quarter: 2008Q3

REPORT INFORMATION
  Report Type: 
  Country: None (occurrence: None)
  Receive Date: 20080926
  Receipt Date: 20080913
  Transmission Date: 20090109
  Serious: Yes (Hospitalization)
  Sender: FDA-Public Use
  Company Number: 238729J08USA

PATIENT
  Age: 49 Year
  Sex: Female
  Weight: 125 kg

DRUGS (19)
  1. REBIF [Suspect]
     Indication: MULTIPLE SCLEROSIS
     Dosage: 44 MCG, 3 IN 1 WEEKS, SUBCUTANEOUS
     Route: 058
     Dates: start: 20060722
  2. COZAAR [Concomitant]
  3. LOVASTATIN [Concomitant]
  4. SINGULAIR (MONTELUKAST /01362601/) [Concomitant]
  5. MAXALT (RIZATRIPTAN) [Concomitant]
  6. COUMADIN [Concomitant]
  7. METFORMIN HCL [Concomitant]
  8. ZANTAC 150 [Concomitant]
  9. PHENERGAN (PROMETHAZINE) [Concomitant]
  10. THYROID TAB [Concomitant]
  11. FOLIC ACID [Concomitant]
  12. LASIX [Concomitant]
  13. BACLOFEN [Concomitant]
  14. POTASSIUM CHLORIDE [Concomitant]
  15. NEURONTIN [Concomitant]
  16. DARVOCET-N 100 [Concomitant]
  17. METHADONE HCL [Concomitant]
  18. ALBUTEROL [Concomitant]
  19. ASMANEX TWISTHALER [Concomitant]

REACTIONS (5)
  - EMBOLISM [None]
  - HAEMATEMESIS [None]
  - MYOCARDIAL INFARCTION [None]
  - THYROID DISORDER [None]
  - VOMITING [None]
